FAERS Safety Report 13071394 (Version 2)
Quarter: 2017Q1

REPORT INFORMATION
  Report Type: Spontaneous
  Country: US (occurrence: US)
  Receive Date: 20161229
  Receipt Date: 20170313
  Transmission Date: 20170428
  Serious: No
  Sender: FDA-Public Use
  Company Number: US-INCYTE CORPORATION-2016IN008179

PATIENT
  Age: 67 Year
  Sex: Female

DRUGS (2)
  1. JAKAFI [Suspect]
     Active Substance: RUXOLITINIB
     Indication: MYELOFIBROSIS
     Dosage: 10 MG, QD
     Route: 048
     Dates: start: 20161105
  2. SPIRONOLACTONE. [Concomitant]
     Active Substance: SPIRONOLACTONE
     Indication: PRODUCT USED FOR UNKNOWN INDICATION

REACTIONS (5)
  - Foot fracture [Unknown]
  - Meniere^s disease [Unknown]
  - Dizziness [Unknown]
  - Fall [Unknown]
  - Contusion [Unknown]

NARRATIVE: CASE EVENT DATE: 20161107
